FAERS Safety Report 25269736 (Version 2)
Quarter: 2025Q2

REPORT INFORMATION
  Report Type: Spontaneous
  Country: JP (occurrence: JP)
  Receive Date: 20250505
  Receipt Date: 20250603
  Transmission Date: 20250717
  Serious: Yes (Hospitalization, Other)
  Sender: EISAI
  Company Number: JP-Eisai-202501352_LEN-EC_P_1

PATIENT
  Age: 56 Year
  Sex: Female

DRUGS (2)
  1. LENVIMA [Suspect]
     Active Substance: LENVATINIB
     Indication: Endometrial cancer
     Route: 048
  2. KEYTRUDA [Suspect]
     Active Substance: PEMBROLIZUMAB
     Indication: Endometrial cancer
     Route: 041
     Dates: end: 2025

REACTIONS (8)
  - Disseminated intravascular coagulation [Unknown]
  - Cytokine release syndrome [Unknown]
  - Rash [Unknown]
  - Cough [Unknown]
  - C-reactive protein increased [Unknown]
  - Procalcitonin increased [Unknown]
  - Platelet count decreased [Unknown]
  - Erythema [Unknown]

NARRATIVE: CASE EVENT DATE: 20250101
